FAERS Safety Report 8425007-9 (Version None)
Quarter: 2012Q2

REPORT INFORMATION
  Report Type: 
  Country: None (occurrence: None)
  Receive Date: 20120605
  Receipt Date: 20120605
  Transmission Date: 20120825
  Serious: Yes (Other)
  Sender: FDA-Public Use
  Company Number: None

PATIENT
  Sex: Female
  Weight: 109.7705 kg

DRUGS (1)
  1. LEVOFLOXACIN [Suspect]
     Indication: BRONCHOPNEUMONIA
     Dosage: ONE TAB WITH FOOD DAILY
     Dates: start: 20120405, end: 20120414

REACTIONS (9)
  - ARTHRALGIA [None]
  - DIARRHOEA [None]
  - RESTLESS LEGS SYNDROME [None]
  - PAIN [None]
  - BURNING SENSATION [None]
  - PARAESTHESIA [None]
  - RECTAL HAEMORRHAGE [None]
  - MUSCULAR WEAKNESS [None]
  - HAEMATOCHEZIA [None]
